FAERS Safety Report 23861291 (Version 1)
Quarter: 2024Q2

REPORT INFORMATION
  Report Type: Report from Study
  Country: US (occurrence: US)
  Receive Date: 20240516
  Receipt Date: 20240516
  Transmission Date: 20240716
  Serious: Yes (Other)
  Sender: FDA-Public Use
  Company Number: US-ABBVIE-5760741

PATIENT
  Sex: Female

DRUGS (4)
  1. VENCLEXTA [Suspect]
     Active Substance: VENETOCLAX
     Indication: Acute myeloid leukaemia
     Dosage: DECREASED TO 1 X 100MG TABLET BY MOUTH DAILY
     Route: 048
     Dates: start: 202404
  2. VENCLEXTA [Suspect]
     Active Substance: VENETOCLAX
     Indication: Acute myeloid leukaemia
     Dosage: 1 X 100MG TABLETS BY MOUTH DAY 1
     Route: 048
     Dates: start: 20240416
  3. VENCLEXTA [Suspect]
     Active Substance: VENETOCLAX
     Indication: Acute myeloid leukaemia
     Dosage: 2 X 100MG TABLETS BY MOUTH DAY 2
     Route: 048
     Dates: start: 20240417
  4. VENCLEXTA [Suspect]
     Active Substance: VENETOCLAX
     Indication: Acute myeloid leukaemia
     Dosage: 4 X 100MG TABLETS BY MOUTH ONCE DAILY STARTING DAY 3
     Route: 048
     Dates: start: 20240418

REACTIONS (3)
  - Full blood count decreased [Unknown]
  - Chronic lymphocytic leukaemia [Unknown]
  - Constipation [Not Recovered/Not Resolved]

NARRATIVE: CASE EVENT DATE: 20240101
